FAERS Safety Report 23173117 (Version 1)
Quarter: 2023Q4

REPORT INFORMATION
  Report Type: Spontaneous
  Country: US (occurrence: US)
  Receive Date: 20231111
  Receipt Date: 20231111
  Transmission Date: 20240109
  Serious: No
  Sender: FDA-Public Use
  Company Number: US-SA-SAC20231109000189

PATIENT
  Age: 36 Year
  Sex: Female

DRUGS (2)
  1. DUPIXENT [Suspect]
     Active Substance: DUPILUMAB
     Indication: Dermatitis atopic
     Dosage: 300 MG, QOW
     Route: 058
  2. VITAMIN D NOS [Concomitant]
     Active Substance: VITAMIN D NOS

REACTIONS (3)
  - Confusional state [Unknown]
  - Anger [Unknown]
  - Irritability [Unknown]

NARRATIVE: CASE EVENT DATE: 20230101
